FAERS Safety Report 7020147-3 (Version None)
Quarter: 2010Q3

REPORT INFORMATION
  Report Type: 
  Country: None (occurrence: None)
  Receive Date: 20100929
  Receipt Date: 20100921
  Transmission Date: 20110219
  Serious: Yes (Hospitalization)
  Sender: FDA-Public Use
  Company Number: US-NOVOPROD-315119

PATIENT
  Sex: Male

DRUGS (6)
  1. VICTOZA [Suspect]
     Indication: TYPE 2 DIABETES MELLITUS
     Dosage: UNK
     Route: 058
     Dates: start: 20100701, end: 20100801
  2. VICTOZA [Suspect]
     Dosage: 1.2 MG, QD
     Route: 058
  3. IPRATROPIUM BROMIDE [Concomitant]
     Indication: ASTHMA
     Dosage: UNK
     Route: 055
  4. SYMBICORT [Concomitant]
     Indication: ASTHMA
     Dosage: 2 PUFF, BID
     Route: 055
  5. QVAR 40 [Concomitant]
     Indication: ASTHMA
     Dosage: 1 PUFF, BID
     Route: 055
  6. PROVENTIL                          /00139501/ [Concomitant]
     Indication: ASTHMA
     Dosage: UNK
     Route: 055

REACTIONS (1)
  - PANCREATITIS [None]
